FAERS Safety Report 4718668-9 (Version None)
Quarter: 2005Q3

REPORT INFORMATION
  Report Type: 
  Country: None (occurrence: None)
  Receive Date: 20050719
  Receipt Date: 20050706
  Transmission Date: 20060218
  Serious: Yes (Other)
  Sender: FDA-Public Use
  Company Number: 2005097224

PATIENT
  Age: 84 Year
  Sex: Female
  Weight: 90.7194 kg

DRUGS (5)
  1. CELEBREX [Suspect]
     Indication: ARTHRITIS
     Dosage: 100 MG (100 MG, 1 IN 1 D), ORAL
     Route: 048
  2. TYLENOL (PARACETAMOL) [Concomitant]
  3. CENTRUM SILVER (ASCORBIC ACID, CALCIUM, MINERALS NOS, RETINOL, TOCOPHE [Concomitant]
  4. ASPIRIN [Concomitant]
  5. GLUCOSAMINE (GLUCOSAMINE) [Concomitant]

REACTIONS (6)
  - ARTHRALGIA [None]
  - BODY HEIGHT DECREASED [None]
  - DIARRHOEA [None]
  - DRUG INEFFECTIVE [None]
  - INSOMNIA [None]
  - TREATMENT NONCOMPLIANCE [None]
